FAERS Safety Report 21673577 (Version 3)
Quarter: 2022Q4

REPORT INFORMATION
  Report Type: Spontaneous
  Country: TR (occurrence: TR)
  Receive Date: 20221202
  Receipt Date: 20221221
  Transmission Date: 20230112
  Serious: Yes (Hospitalization)
  Sender: FDA-Public Use
  Company Number: TR-MYLANLABS-2022M1133940

PATIENT
  Age: 5 Year
  Sex: Female
  Weight: 17 kg

DRUGS (3)
  1. CYSTAGON [Suspect]
     Active Substance: CYSTEAMINE BITARTRATE
     Indication: Cystinosis
     Dosage: 8 DOSAGE FORM, QD (DAILY DOSE 8 PIECES)
     Route: 048
     Dates: start: 202211, end: 202211
  2. SODIUM PHOSPHATE, MONOBASIC, ANHYDROUS [Concomitant]
     Active Substance: SODIUM PHOSPHATE, MONOBASIC, ANHYDROUS
     Indication: Hypophosphataemia
     Dosage: 2.5 DOSAGE FORM
     Route: 065
  3. POT K [Concomitant]
     Indication: Hypokalaemia
     Dosage: 1 DOSAGE FORM
     Route: 065

REACTIONS (5)
  - Abdominal pain [Recovered/Resolved]
  - Vomiting [Recovered/Resolved]
  - Diarrhoea [Recovered/Resolved]
  - Product physical issue [Unknown]
  - Product odour abnormal [Unknown]

NARRATIVE: CASE EVENT DATE: 20221101
